FAERS Safety Report 25806036 (Version 1)
Quarter: 2025Q3

REPORT INFORMATION
  Report Type: Spontaneous
  Country: GB (occurrence: GB)
  Receive Date: 20250916
  Receipt Date: 20250916
  Transmission Date: 20251021
  Serious: Yes (Other)
  Sender: ROCHE
  Company Number: GB-ROCHE-10000383686

PATIENT
  Age: 55 Year
  Sex: Male

DRUGS (4)
  1. FARICIMAB [Suspect]
     Active Substance: FARICIMAB
     Indication: Diabetic retinal oedema
     Route: 050
  2. FARICIMAB [Suspect]
     Active Substance: FARICIMAB
  3. FARICIMAB [Suspect]
     Active Substance: FARICIMAB
  4. FARICIMAB [Suspect]
     Active Substance: FARICIMAB

REACTIONS (1)
  - Toxic anterior segment syndrome [Recovering/Resolving]
